FAERS Safety Report 6516058-X (Version None)
Quarter: 2009Q4

REPORT INFORMATION
  Report Type: 
  Country: None (occurrence: None)
  Receive Date: 20091223
  Receipt Date: 20091216
  Transmission Date: 20100525
  Serious: Yes (Other)
  Sender: FDA-Public Use
  Company Number: JP-BAYER-200914628BYL

PATIENT
  Age: 72 Year
  Sex: Male
  Weight: 55 kg

DRUGS (3)
  1. NEXAVAR [Suspect]
     Indication: RENAL CELL CARCINOMA
     Dosage: TOTAL DAILY DOSE: 800 MG  UNIT DOSE: 200 MG
     Route: 048
     Dates: start: 20091105, end: 20091111
  2. DIOVAN [Concomitant]
     Indication: HYPERTENSION
     Dosage: SINCE BEFORE NEXAVAR ADMINISTRATION
     Route: 048
  3. NORVASC [Concomitant]
     Indication: HYPERTENSION
     Dosage: SINCE BEFORE NEXAVAR ADMINISTRATION
     Route: 048

REACTIONS (3)
  - DELIRIUM [None]
  - HYPERTENSION [None]
  - SOMNOLENCE [None]
